FAERS Safety Report 4501806-0 (Version None)
Quarter: 2004Q4

REPORT INFORMATION
  Report Type: 
  Country: None (occurrence: None)
  Receive Date: 20041115
  Receipt Date: 20041115
  Transmission Date: 20050328
  Serious: Yes (Life-Threatening, Hospitalization)
  Sender: FDA-Public Use
  Company Number: None

PATIENT
  Age: 75 Year
  Sex: Male
  Weight: 91.8 kg

DRUGS (21)
  1. FUROSEMIDE [Suspect]
  2. METOLAZONE [Suspect]
  3. FOSINOPRIL 40 MG TAB [Suspect]
  4. IPRATROPIUM/ALBUTEROL [Concomitant]
  5. DARBEPOETIN ALFA [Concomitant]
  6. ACETAMINOPHEN [Concomitant]
  7. GLIPIZIDE [Concomitant]
  8. ISOSORBIDE DINITRATE [Concomitant]
  9. SIMVASTATIN [Concomitant]
  10. GOSERELIN ACETATE [Concomitant]
  11. CLOTRIMAZOLE [Concomitant]
  12. DILTIAZEM [Concomitant]
  13. HYDRALAZINE [Concomitant]
  14. SUGAR FREE COUGH SYRUP DM [Concomitant]
  15. DARBEPOETIN ALFA [Concomitant]
  16. FLUTAMIDE [Concomitant]
  17. FERROUS SULFATE TAB [Concomitant]
  18. GENTAMYCIN SULFATE [Concomitant]
  19. FLUNISOLIDE [Concomitant]
  20. SIMVASTATIN [Concomitant]
  21. PNEUMOVAX 23 [Concomitant]

REACTIONS (1)
  - RENAL FAILURE ACUTE [None]
